FAERS Safety Report 15434642 (Version 1)
Quarter: 2018Q3

REPORT INFORMATION
  Report Type: Spontaneous
  Country: KR (occurrence: KR)
  Receive Date: 20180927
  Receipt Date: 20180927
  Transmission Date: 20181010
  Serious: Yes (Death, Other)
  Sender: FDA-Public Use
  Company Number: KR-BAYER-2018-179996

PATIENT
  Age: 70 Year
  Sex: Male

DRUGS (4)
  1. XOFIGO [Suspect]
     Active Substance: RADIUM RA-223 DICHLORIDE
     Indication: PROSTATE CANCER METASTATIC
     Dosage: COMPLETED 6 DOSES
     Dates: start: 201705, end: 201709
  2. XOFIGO [Suspect]
     Active Substance: RADIUM RA-223 DICHLORIDE
     Indication: METASTASES TO BONE
  3. ENZALUTAMIDE [Concomitant]
     Active Substance: ENZALUTAMIDE
  4. ABIRATERONE [Concomitant]
     Active Substance: ABIRATERONE

REACTIONS (5)
  - Fall [None]
  - Humerus fracture [None]
  - Labelled drug-drug interaction medication error [None]
  - Acute respiratory distress syndrome [Fatal]
  - Pneumonia [Fatal]
